FAERS Safety Report 16307686 (Version 1)
Quarter: 2019Q2

REPORT INFORMATION
  Report Type: Report from Study
  Country: ES (occurrence: ES)
  Receive Date: 20190514
  Receipt Date: 20190514
  Transmission Date: 20190711
  Serious: Yes (Death, Hospitalization)
  Sender: FDA-Public Use
  Company Number: ES-TEVA-2019-ES-1048320

PATIENT
  Age: 68 Year
  Sex: Male

DRUGS (6)
  1. PRAVASTATINA SODICA (7192SO) [Suspect]
     Active Substance: PRAVASTATIN SODIUM
     Indication: DYSLIPIDAEMIA
     Route: 048
     Dates: start: 201602, end: 20190127
  2. MIRABEGRON (8623A) [Concomitant]
     Active Substance: MIRABEGRON
     Route: 048
     Dates: start: 201509, end: 20190127
  3. PERMIXON 160 MG CAPSULAS DURAS, 60 C?PSULAS [Concomitant]
     Route: 048
     Dates: start: 201508, end: 20190127
  4. LISINOPRIL + HIDROCLOROTIAZIDA [Concomitant]
     Active Substance: HYDROCHLOROTHIAZIDE\LISINOPRIL
     Indication: HYPERTENSION
     Route: 048
     Dates: start: 201603
  5. ACENOCUMAROL (220A) [Interacting]
     Active Substance: ACENOCOUMAROL
     Indication: ATRIAL FIBRILLATION
     Route: 048
     Dates: start: 201602
  6. BISOPROLOL (2328A) [Concomitant]
     Active Substance: BISOPROLOL
     Indication: HYPERTENSION
     Route: 048
     Dates: start: 201602, end: 20190127

REACTIONS (2)
  - Haemorrhage intracranial [Fatal]
  - Drug interaction [Unknown]

NARRATIVE: CASE EVENT DATE: 20190112
